FAERS Safety Report 11446424 (Version 1)
Quarter: 2015Q3

REPORT INFORMATION
  Report Type: Spontaneous
  Country: US (occurrence: US)
  Receive Date: 20150831
  Receipt Date: 20150831
  Transmission Date: 20151125
  Serious: Yes (Other)
  Sender: FDA-Public Use
  Company Number: US-ELI_LILLY_AND_COMPANY-US200812002018

PATIENT
  Sex: Female

DRUGS (2)
  1. CYMBALTA [Suspect]
     Active Substance: DULOXETINE HYDROCHLORIDE
     Dosage: 60 MG, DAILY (1/D)
     Dates: start: 200810
  2. CYMBALTA [Suspect]
     Active Substance: DULOXETINE HYDROCHLORIDE
     Dosage: 1080 MG, UNK
     Dates: start: 20081207

REACTIONS (4)
  - Chest pain [Unknown]
  - Dizziness [Unknown]
  - Feeling abnormal [Unknown]
  - Intentional overdose [Unknown]

NARRATIVE: CASE EVENT DATE: 20081207
